FAERS Safety Report 18199680 (Version 5)
Quarter: 2021Q4

REPORT INFORMATION
  Report Type: Spontaneous
  Country: US (occurrence: US)
  Receive Date: 20200826
  Receipt Date: 20211129
  Transmission Date: 20220303
  Serious: Yes (Other)
  Sender: FDA-Public Use
  Company Number: US-PFIZER INC-2017432634

PATIENT
  Age: 65 Year
  Sex: Female

DRUGS (12)
  1. LYRICA [Suspect]
     Active Substance: PREGABALIN
     Indication: Back pain
     Dosage: 200 MG, 1X/DAY (ONE CAPSULE BY MOUTH NIGHTLY)
     Route: 048
     Dates: start: 20170926, end: 20171225
  2. LYRICA [Suspect]
     Active Substance: PREGABALIN
     Indication: Fibromyalgia
     Dosage: 100 MG, 1X/DAY
     Route: 048
     Dates: start: 20171006, end: 20180104
  3. LYRICA [Suspect]
     Active Substance: PREGABALIN
     Indication: Bursitis
     Dosage: 100 MG, 1X/DAY
     Route: 048
     Dates: start: 20181016, end: 20191011
  4. LYRICA [Suspect]
     Active Substance: PREGABALIN
     Dosage: 200 MG, 1X/DAY
     Route: 048
     Dates: start: 20181016, end: 20191011
  5. LYRICA [Suspect]
     Active Substance: PREGABALIN
     Dosage: 100 MG, 1X/DAY
     Route: 048
     Dates: start: 20191003, end: 20200331
  6. LYRICA [Suspect]
     Active Substance: PREGABALIN
     Dosage: 200 MG, 1X/DAY
     Route: 048
     Dates: start: 20191003, end: 20200331
  7. LYRICA [Suspect]
     Active Substance: PREGABALIN
     Dosage: 100 MG, 1X/DAY (TAKE 1 CAPSULE BY MOUTH DAILY FOR 180 DAYS, 180 CAPSULE)
     Route: 048
  8. LYRICA [Suspect]
     Active Substance: PREGABALIN
     Dosage: 200 MG, 1X/DAY (TAKE 1 CAP BY MOUTH NIGHTLY FOR 180 DAYS, 180 CAPSULE)
     Route: 048
  9. LYRICA [Suspect]
     Active Substance: PREGABALIN
     Dosage: 100 MG, DAILY (TAKE 1 CAP BY MOUTH DAILY FOR 360 DAYS, 180 CAPSULE)
     Route: 048
  10. LYRICA [Suspect]
     Active Substance: PREGABALIN
     Dosage: 200 MG, DAILY (TAKE 1 CAP BY MOUTH DAILY FOR 360 DAYS, 180 CAPSULE)
     Route: 048
  11. OXYCONTIN [Concomitant]
     Active Substance: OXYCODONE HYDROCHLORIDE
     Dosage: 15 MG, 2X/DAY
  12. OXYCONTIN [Concomitant]
     Active Substance: OXYCODONE HYDROCHLORIDE
     Dosage: 10 MG, 2X/DAY

REACTIONS (6)
  - Fall [Unknown]
  - Rotator cuff syndrome [Unknown]
  - Asthma [Unknown]
  - Illness [Unknown]
  - Anxiety [Unknown]
  - Insomnia [Unknown]

NARRATIVE: CASE EVENT DATE: 20210101
